FAERS Safety Report 8200137-5 (Version None)
Quarter: 2012Q1

REPORT INFORMATION
  Report Type: 
  Country: None (occurrence: None)
  Receive Date: 20120312
  Receipt Date: 20120305
  Transmission Date: 20120608
  Serious: Yes (Life-Threatening, Hospitalization)
  Sender: FDA-Public Use
  Company Number: US-BAYER-2011-097371

PATIENT
  Age: 18 Year
  Sex: Female
  Weight: 77 kg

DRUGS (5)
  1. DOXYCYCLINE HYCLATE [Concomitant]
     Dosage: 100 MG, BID
     Dates: start: 20100101
  2. YASMIN [Suspect]
     Indication: MENSTRUATION IRREGULAR
     Dosage: UNK
     Dates: start: 20070406, end: 20090501
  3. DECADRON [Concomitant]
     Dosage: 4 MG, UNK
     Route: 055
     Dates: start: 20101001
  4. AMOXICILLIN [Concomitant]
     Dosage: 500 MG, BID
     Route: 048
     Dates: start: 20100903, end: 20100913
  5. DROSPIRENONE AND ETHINYL ESTRADIOL [Suspect]
     Indication: MENSTRUATION IRREGULAR
     Dosage: UNK
     Dates: start: 20090501, end: 20101101

REACTIONS (11)
  - MUSCULOSKELETAL PAIN [None]
  - DIZZINESS [None]
  - CHEST PAIN [None]
  - NECK PAIN [None]
  - BACK PAIN [None]
  - PULMONARY EMBOLISM [None]
  - DYSPNOEA [None]
  - ANXIETY [None]
  - FEAR [None]
  - JUGULAR VEIN THROMBOSIS [None]
  - CAROTID ARTERY THROMBOSIS [None]
